FAERS Safety Report 8492159-4 (Version None)
Quarter: 2012Q3

REPORT INFORMATION
  Report Type: 
  Country: None (occurrence: None)
  Receive Date: 20120706
  Receipt Date: 20120628
  Transmission Date: 20120928
  Serious: Yes (Other)
  Sender: FDA-Public Use
  Company Number: US-UCBSA-060826

PATIENT
  Age: 77 Year
  Sex: Female
  Weight: 68.03 kg

DRUGS (3)
  1. CIMZIA [Suspect]
     Indication: RHEUMATOID ARTHRITIS
     Route: 058
     Dates: end: 20110818
  2. CIMZIA [Suspect]
     Route: 058
     Dates: start: 20100109
  3. ENBREL [Concomitant]
     Dosage: UNKNOWN DOSE

REACTIONS (8)
  - ROTATOR CUFF SYNDROME [None]
  - JOINT SWELLING [None]
  - DRUG INEFFECTIVE [None]
  - FALL [None]
  - URINARY INCONTINENCE [None]
  - RHEUMATOID ARTHRITIS [None]
  - FATIGUE [None]
  - JOINT DISLOCATION [None]
